FAERS Safety Report 8728063 (Version 5)
Quarter: 2012Q4

REPORT INFORMATION
  Report Type: 
  Country: PT (occurrence: PT)
  Receive Date: 20120817
  Receipt Date: 20121019
  Transmission Date: 20130627
  Serious: Yes (Other)
  Sender: FDA-Public Use
  Company Number: PT-AMGEN-PRTSP2012045646

PATIENT
  Age: 69 Year
  Sex: Female

DRUGS (4)
  1. ENBREL [Suspect]
     Indication: RHEUMATOID ARTHRITIS
     Dosage: 50 mg, weekly
     Route: 058
     Dates: start: 20120507, end: 20120604
  2. METHOTREXATE [Concomitant]
     Dosage: 20 mg, weekly
  3. PREDNISOLON                        /00016201/ [Concomitant]
     Dosage: 10 mg, daily
  4. NAPROXEN [Concomitant]
     Dosage: 1 g, daily

REACTIONS (2)
  - Periorbital oedema [Recovered/Resolved]
  - Product quality issue [Unknown]
